FAERS Safety Report 13868361 (Version 5)
Quarter: 2018Q3

REPORT INFORMATION
  Report Type: Report from Study
  Country: US (occurrence: US)
  Receive Date: 20170815
  Receipt Date: 20180706
  Transmission Date: 20181010
  Serious: No
  Sender: FDA-Public Use
  Company Number: PHEH2017US025476

PATIENT
  Sex: Male

DRUGS (2)
  1. AFINITOR DISPERZ [Suspect]
     Active Substance: EVEROLIMUS
     Indication: ASTROCYTOMA, LOW GRADE
     Dosage: 3 MG, QD
     Route: 048
     Dates: start: 20170731
  2. KEPPRA [Concomitant]
     Active Substance: LEVETIRACETAM
     Indication: SEIZURE
     Route: 065

REACTIONS (15)
  - Pruritus [Not Recovered/Not Resolved]
  - Abnormal behaviour [Not Recovered/Not Resolved]
  - Pain in extremity [Unknown]
  - Diarrhoea [Unknown]
  - Rhinorrhoea [Not Recovered/Not Resolved]
  - Crying [Not Recovered/Not Resolved]
  - Cough [Unknown]
  - Diarrhoea [Recovered/Resolved]
  - Aphthous ulcer [Not Recovered/Not Resolved]
  - Screaming [Not Recovered/Not Resolved]
  - Speech disorder [Not Recovered/Not Resolved]
  - Contusion [Unknown]
  - Moaning [Unknown]
  - Aggression [Not Recovered/Not Resolved]
  - Teething [Not Recovered/Not Resolved]
